FAERS Safety Report 15323172 (Version 5)
Quarter: 2018Q4

REPORT INFORMATION
  Report Type: Spontaneous
  Country: US (occurrence: US)
  Receive Date: 20180827
  Receipt Date: 20181004
  Transmission Date: 20190204
  Serious: No
  Sender: FDA-Public Use
  Company Number: US-PFIZER INC-2018341496

PATIENT
  Age: 72 Year
  Sex: Male

DRUGS (1)
  1. SPIRONOLACTONE. [Suspect]
     Active Substance: SPIRONOLACTONE
     Indication: HYPERALDOSTERONISM
     Dosage: 75 MG, DAILY, (50 MG IN AM; 25 MG AT NOON)
     Dates: start: 1980

REACTIONS (5)
  - Ear discomfort [Unknown]
  - Ocular discomfort [Unknown]
  - Malaise [Unknown]
  - Chest pain [Unknown]
  - Asthenia [Unknown]
